FAERS Safety Report 7557351-1 (Version None)
Quarter: 2011Q2

REPORT INFORMATION
  Report Type: 
  Country: None (occurrence: None)
  Receive Date: 20110620
  Receipt Date: 20110606
  Transmission Date: 20111010
  Serious: Yes (Hospitalization)
  Sender: FDA-Public Use
  Company Number: PHHY2011US15563

PATIENT
  Sex: Female

DRUGS (13)
  1. SYNTHROID [Concomitant]
     Dosage: 100 UG
  2. XANAX [Concomitant]
     Dosage: 0.25 MG
     Route: 048
  3. PERCOCET [Concomitant]
  4. TRAMADOL HCL [Concomitant]
     Dosage: 100 MG
  5. PANCREASE MT 16 [Concomitant]
     Dosage: UNK
  6. PREMARIN [Concomitant]
     Dosage: 0.625 MG
  7. CREON [Concomitant]
     Dosage: 2400 U
  8. ACIPHEX [Concomitant]
     Dosage: UNK
  9. DEXLANSOPRAZOLE [Concomitant]
  10. ASPIRIN [Concomitant]
     Dosage: 81 MG
  11. SILYBUM MARIANUM [Concomitant]
  12. MILK THISTLE [Concomitant]
     Dosage: UNK
  13. RECLAST [Suspect]
     Indication: OSTEOPOROSIS
     Dosage: 5 MG, YEARLY
     Route: 042
     Dates: start: 20101228

REACTIONS (8)
  - MYALGIA [None]
  - PAIN [None]
  - PAIN IN EXTREMITY [None]
  - DYSPNOEA [None]
  - MUSCULOSKELETAL PAIN [None]
  - CHEST PAIN [None]
  - ARTHRALGIA [None]
  - BONE SWELLING [None]
